FAERS Safety Report 4638695-X (Version None)
Quarter: 2005Q2

REPORT INFORMATION
  Report Type: 
  Country: None (occurrence: None)
  Receive Date: 20050419
  Receipt Date: 20050405
  Transmission Date: 20051028
  Serious: Yes (Other)
  Sender: FDA-Public Use
  Company Number: US-BOEHRINGER INGELHEIM PHARMACEUTICALS, INC.-2005-DE-01306GD

PATIENT
  Age: 37 Year
  Sex: Female

DRUGS (3)
  1. PRAMIPEXOLE [Suspect]
     Indication: PARKINSON'S DISEASE
  2. SELEGILINE HCL [Suspect]
     Indication: PARKINSON'S DISEASE
  3. LEVODOPA [Concomitant]
     Indication: PARKINSON'S DISEASE

REACTIONS (8)
  - DELUSION [None]
  - ELEVATED MOOD [None]
  - ENERGY INCREASED [None]
  - INSOMNIA [None]
  - IRRITABILITY [None]
  - LIBIDO INCREASED [None]
  - MANIA [None]
  - PARANOIA [None]
